FAERS Safety Report 7180515-6 (Version None)
Quarter: 2010Q4

REPORT INFORMATION
  Report Type: 
  Country: None (occurrence: None)
  Receive Date: 20101221
  Receipt Date: 20101213
  Transmission Date: 20110411
  Serious: Yes (Other)
  Sender: FDA-Public Use
  Company Number: FI-AMGEN-FINSP2010010073

PATIENT

DRUGS (10)
  1. ENBREL [Suspect]
     Indication: ANKYLOSING SPONDYLITIS
     Dosage: 50 MG, 2X/WEEK
     Route: 058
     Dates: start: 20100907
  2. SALAZOPYRIN [Suspect]
     Indication: ANKYLOSING SPONDYLITIS
     Dosage: UNK
  3. HUMIRA [Suspect]
     Dosage: 40 MG AT EVERY SECOND WEEK
     Dates: start: 20090520
  4. PREDNISOLONE [Concomitant]
     Dosage: 5 MG, 1X/DAY, TAKEN AS COURSES
  5. PRIMASPAN [Concomitant]
     Dosage: 100 MG, 1X/DAY
  6. BURANA [Concomitant]
     Indication: PAIN
     Dosage: UNK
  7. RAMIPRIL [Concomitant]
     Dosage: 5 MG, 1X/DAY
  8. HYDREX [Concomitant]
     Dosage: UNK
  9. KALCIPOS-D [Concomitant]
     Dosage: 2 DOSES DAILY
  10. TREXAN (METHOTREXATE) [Concomitant]

REACTIONS (3)
  - ALANINE AMINOTRANSFERASE INCREASED [None]
  - DERMATITIS [None]
  - DYSPNOEA [None]
